FAERS Safety Report 12525244 (Version 1)
Quarter: 2016Q3

REPORT INFORMATION
  Report Type: Spontaneous
  Country: US (occurrence: US)
  Receive Date: 20160704
  Receipt Date: 20160704
  Transmission Date: 20161109
  Serious: No
  Sender: FDA-Public Use
  Company Number: US-009507513-1606USA013475

PATIENT
  Age: 44 Year
  Sex: Female
  Weight: 67.12 kg

DRUGS (2)
  1. NEXPLANON [Suspect]
     Active Substance: ETONOGESTREL
     Indication: CONTRACEPTION
     Dosage: EVERY 3 YEARS
     Route: 059
     Dates: start: 20140506
  2. NEXPLANON [Suspect]
     Active Substance: ETONOGESTREL
     Indication: MENSTRUATION IRREGULAR

REACTIONS (2)
  - Amenorrhoea [Recovered/Resolved]
  - Metrorrhagia [Unknown]

NARRATIVE: CASE EVENT DATE: 20160618
